FAERS Safety Report 11301411 (Version 1)
Quarter: 2015Q3

REPORT INFORMATION
  Report Type: Spontaneous
  Country: US (occurrence: US)
  Receive Date: 20150722
  Receipt Date: 20150722
  Transmission Date: 20151125
  Serious: No
  Sender: FDA-Public Use
  Company Number: US-ELI_LILLY_AND_COMPANY-US201004007328

PATIENT
  Sex: Male

DRUGS (3)
  1. TESTOSTERONE. [Concomitant]
     Active Substance: TESTOSTERONE
  2. HUMATROPE [Suspect]
     Active Substance: SOMATROPIN
     Dates: start: 2008
  3. AMPHOTERICIN [Concomitant]
     Active Substance: AMPHOTERICIN B
     Indication: SINUSITIS
     Dosage: 200 MG, UNK
     Route: 045
     Dates: start: 201002

REACTIONS (4)
  - Snoring [Recovering/Resolving]
  - Sinusitis [Recovering/Resolving]
  - Dysphonia [Not Recovered/Not Resolved]
  - Malaise [Recovering/Resolving]

NARRATIVE: CASE EVENT DATE: 201002
